FAERS Safety Report 6399226-X (Version None)
Quarter: 2009Q4

REPORT INFORMATION
  Report Type: 
  Country: None (occurrence: None)
  Receive Date: 20091013
  Receipt Date: 20091007
  Transmission Date: 20100525
  Serious: Yes (Life-Threatening, Other)
  Sender: FDA-Public Use
  Company Number: GB-ABBOTT-07P-167-0422351-00

PATIENT
  Sex: Female

DRUGS (10)
  1. HUMIRA [Suspect]
     Indication: CROHN'S DISEASE
     Route: 058
     Dates: start: 20070620, end: 20071017
  2. ESOMEPRAZOLE [Concomitant]
     Indication: CROHN'S DISEASE
     Route: 048
  3. MERCAPTOPURINE [Concomitant]
     Indication: CROHN'S DISEASE
     Route: 048
  4. GABAPENTIN [Concomitant]
     Indication: PAIN
     Route: 048
  5. CYCLIZINE [Concomitant]
     Indication: NAUSEA
     Route: 030
  6. ONDANSETRON [Concomitant]
     Indication: NAUSEA
     Route: 048
  7. MORPHINE [Concomitant]
     Indication: NAUSEA
     Route: 058
  8. ACETAMINOPHEN [Concomitant]
     Indication: PAIN
     Dosage: 1 GRAM EVERY 4-6 HOURS
     Route: 048
  9. ENOXAPAREN [Concomitant]
     Indication: ANTICOAGULANT THERAPY
     Route: 058
  10. KETAMINE HCL [Concomitant]
     Indication: PAIN
     Dosage: 8 MLS EVERY 4 HOURS
     Route: 048

REACTIONS (9)
  - AREFLEXIA [None]
  - ATAXIA [None]
  - CROHN'S DISEASE [None]
  - DEMYELINATION [None]
  - MOBILITY DECREASED [None]
  - MUSCULAR WEAKNESS [None]
  - OPHTHALMOPLEGIA [None]
  - VISION BLURRED [None]
  - VISUAL ACUITY REDUCED [None]
